FAERS Safety Report 4754478-4 (Version None)
Quarter: 2005Q3

REPORT INFORMATION
  Report Type: 
  Country: None (occurrence: None)
  Receive Date: 20050829
  Receipt Date: 20041122
  Transmission Date: 20060218
  Serious: No
  Sender: FDA-Public Use
  Company Number: US-GLAXOSMITHKLINE-A0534876A

PATIENT
  Age: 46 Year
  Sex: Female

DRUGS (10)
  1. ZOVIRAX [Suspect]
     Dosage: 200MG THREE TIMES PER DAY
     Route: 048
  2. METHADONE HCL [Concomitant]
  3. PREVACID [Concomitant]
  4. DEMEROL [Concomitant]
  5. DIAZEPAM [Concomitant]
  6. DARVOCET [Concomitant]
  7. IMIPRAMINE [Concomitant]
  8. ZOLOFT [Concomitant]
  9. ZANAFLEX [Concomitant]
  10. HYDROXINE [Concomitant]

REACTIONS (4)
  - ABASIA [None]
  - PAIN [None]
  - PAIN IN EXTREMITY [None]
  - SKIN LESION [None]
